FAERS Safety Report 8554650 (Version 3)
Quarter: 2013Q1

REPORT INFORMATION
  Report Type: Spontaneous
  Country: DK (occurrence: JP)
  Receive Date: 20120509
  Receipt Date: 20130118
  Transmission Date: 20140127
  Serious: No
  Sender: FDA-Public Use
  Company Number: JP-FRI-1000030371

PATIENT
  Sex: Female

DRUGS (1)
  1. LEXAPRO [Suspect]
     Route: 048
     Dates: start: 20120216

REACTIONS (7)
  - Convulsion [Unknown]
  - Muscle rigidity [Unknown]
  - Headache [Unknown]
  - Tremor [Unknown]
  - Corneal reflex decreased [Unknown]
  - Paraesthesia [None]
  - Excessive eye blinking [None]
